FAERS Safety Report 7250231-0 (Version None)
Quarter: 2011Q1

REPORT INFORMATION
  Report Type: 
  Country: None (occurrence: None)
  Receive Date: 20110128
  Receipt Date: 20101231
  Transmission Date: 20110831
  Serious: No
  Sender: FDA-Public Use
  Company Number: US-BAYER-200935238NA

PATIENT
  Sex: Female
  Weight: 87.982 kg

DRUGS (1)
  1. MIRENA [Suspect]
     Indication: CONTRACEPTION
     Dosage: CONTINUOUS
     Route: 015
     Dates: start: 20090614

REACTIONS (3)
  - PREGNANCY WITH CONTRACEPTIVE DEVICE [None]
  - DEVICE DISLOCATION [None]
  - NAUSEA [None]
